FAERS Safety Report 21670139 (Version 1)
Quarter: 2022Q4

REPORT INFORMATION
  Report Type: Report from Study
  Country: HU (occurrence: HU)
  Receive Date: 20221201
  Receipt Date: 20221201
  Transmission Date: 20230113
  Serious: Yes (Hospitalization)
  Sender: FDA-Public Use
  Company Number: HU-ABBVIE-4215779

PATIENT
  Age: 17 Year
  Sex: Female

DRUGS (7)
  1. PLACEBO [Suspect]
     Active Substance: UNSPECIFIED INGREDIENT
     Indication: Dermatitis atopic
     Route: 048
     Dates: start: 20200714, end: 20201109
  2. UPADACITINIB [Suspect]
     Active Substance: UPADACITINIB
     Indication: Dermatitis atopic
     Route: 048
     Dates: start: 20201110
  3. HYDROCORTISONE BUTYRATE [Suspect]
     Active Substance: HYDROCORTISONE BUTYRATE
     Indication: Dermatitis atopic
     Route: 061
     Dates: start: 20200908, end: 20201208
  4. HYDROCORTISONE BUTYRATE [Suspect]
     Active Substance: HYDROCORTISONE BUTYRATE
     Indication: Dermatitis atopic
     Route: 061
     Dates: start: 20200804, end: 20200810
  5. BIODERMA ATODERM PP BAUME [Concomitant]
     Indication: Dry skin prophylaxis
     Dosage: AS NEEDED
     Route: 061
     Dates: start: 20200623
  6. MOMETASONE FUROATE [Suspect]
     Active Substance: MOMETASONE FUROATE
     Indication: Dermatitis atopic
     Route: 061
     Dates: start: 20200714, end: 20200803
  7. DIENILLE [Concomitant]
     Indication: Contraception
     Route: 048
     Dates: start: 20220803

REACTIONS (1)
  - Cystitis [Recovered/Resolved]

NARRATIVE: CASE EVENT DATE: 20221110
